FAERS Safety Report 7729000-0 (Version None)
Quarter: 2011Q3

REPORT INFORMATION
  Report Type: 
  Country: None (occurrence: None)
  Receive Date: 20110831
  Receipt Date: 20110817
  Transmission Date: 20111222
  Serious: Yes (Hospitalization, Other)
  Sender: FDA-Public Use
  Company Number: 2009AL001005

PATIENT
  Age: 80 Year
  Sex: Female
  Weight: 65.318 kg

DRUGS (21)
  1. FUROSEMIDE [Concomitant]
  2. INSULIN [Concomitant]
  3. WELLBUTRIN [Concomitant]
  4. TYLENOL-500 [Concomitant]
  5. WARFARIN SODIUM [Concomitant]
  6. METOCLOPRAMIDE [Concomitant]
  7. LISINOPRIL [Concomitant]
  8. VITAMIN K TAB [Concomitant]
  9. LOVASTATIN [Concomitant]
  10. HYDROCODONE [Concomitant]
  11. ZETIA [Concomitant]
  12. DIGOXIN [Suspect]
     Indication: ATRIAL FIBRILLATION
     Dosage: .250 MG;QD;PO
     Route: 048
     Dates: start: 20070806, end: 20080114
  13. AMLODIPINE [Concomitant]
  14. CALCIUM OYSTER SHELL [Concomitant]
  15. LACTULOSE [Concomitant]
  16. ASPIRIN [Concomitant]
  17. SYNTHROID [Concomitant]
  18. JANUVIA [Concomitant]
  19. PLAVIX [Concomitant]
  20. METOPROLOL SUCCINATE [Concomitant]
  21. MAGIC MOUTHWASH [Concomitant]

REACTIONS (12)
  - ATRIAL FIBRILLATION [None]
  - MALNUTRITION [None]
  - ISCHAEMIA [None]
  - BRADYCARDIA [None]
  - ODYNOPHAGIA [None]
  - INJURY [None]
  - ANXIETY [None]
  - TOXICITY TO VARIOUS AGENTS [None]
  - MENTAL STATUS CHANGES [None]
  - EMOTIONAL DISTRESS [None]
  - INTERNATIONAL NORMALISED RATIO INCREASED [None]
  - DYSPHAGIA [None]
